FAERS Safety Report 5012212-7 (Version None)
Quarter: 2006Q2

REPORT INFORMATION
  Report Type: 
  Country: None (occurrence: None)
  Receive Date: 20060525
  Receipt Date: 20060525
  Transmission Date: 20061013
  Serious: No
  Sender: FDA-Public Use
  Company Number: None

PATIENT
  Sex: Female

DRUGS (1)
  1. BCG LIVE INTRAVESICAL VAC. [Suspect]
     Indication: BLADDER CANCER
     Dosage: 1 X PER WEEK FOR 12 WEEKS

REACTIONS (1)
  - BLADDER CANCER RECURRENT [None]
